FAERS Safety Report 11766581 (Version 2)
Quarter: 2016Q1

REPORT INFORMATION
  Report Type: Spontaneous
  Country: US (occurrence: US)
  Receive Date: 20151123
  Receipt Date: 20160119
  Transmission Date: 20160525
  Serious: Yes (Hospitalization)
  Sender: FDA-Public Use
  Company Number: US-BEH-2015055874

PATIENT
  Age: 42 Year
  Sex: Male
  Weight: 62.2 kg

DRUGS (24)
  1. NYSTATIN. [Concomitant]
     Active Substance: NYSTATIN
  2. NASONEX [Concomitant]
     Active Substance: MOMETASONE FUROATE
  3. LORATADINE. [Concomitant]
     Active Substance: LORATADINE
  4. VITAMIN D [Concomitant]
     Active Substance: CHOLECALCIFEROL
  5. ZEMAIRA [Suspect]
     Active Substance: .ALPHA.1-PROTEINASE INHIBITOR HUMAN
     Indication: ALPHA-1 ANTI-TRYPSIN DEFICIENCY
     Route: 042
     Dates: start: 20120207
  6. SODIUM CHLORIDE. [Concomitant]
     Active Substance: SODIUM CHLORIDE
  7. EPIPEN [Concomitant]
     Active Substance: EPINEPHRINE
  8. CLINDAMYCIN HCL [Concomitant]
     Active Substance: CLINDAMYCIN HYDROCHLORIDE
  9. VICODIN [Concomitant]
     Active Substance: ACETAMINOPHEN\HYDROCODONE BITARTRATE
  10. LASIX [Concomitant]
     Active Substance: FUROSEMIDE
  11. OXYGEN. [Concomitant]
     Active Substance: OXYGEN
  12. ERYTHROMYCIN. [Concomitant]
     Active Substance: ERYTHROMYCIN
  13. VOLTAREN [Concomitant]
     Active Substance: DICLOFENAC SODIUM
  14. DIPHENHYDRAMINE. [Concomitant]
     Active Substance: DIPHENHYDRAMINE
  15. DAKIN [Concomitant]
  16. AZITHROMYCIN ANHYDROUS. [Concomitant]
     Active Substance: AZITHROMYCIN ANHYDROUS
  17. CLOTRIMAZOLE. [Concomitant]
     Active Substance: CLOTRIMAZOLE
  18. MUPIROCIN. [Concomitant]
     Active Substance: MUPIROCIN
  19. NORCO [Concomitant]
     Active Substance: ACETAMINOPHEN\HYDROCODONE BITARTRATE
  20. ASPIRIN. [Concomitant]
     Active Substance: ASPIRIN
  21. MUCINEX ER [Concomitant]
  22. GABAPENTIN. [Concomitant]
     Active Substance: GABAPENTIN
  23. TRAMADOL. [Concomitant]
     Active Substance: TRAMADOL
  24. ACETAMINOPHEN. [Concomitant]
     Active Substance: ACETAMINOPHEN

REACTIONS (3)
  - Skin cancer [Unknown]
  - Pseudomonas infection [Unknown]
  - Postoperative wound infection [Unknown]

NARRATIVE: CASE EVENT DATE: 201510
